FAERS Safety Report 4377104-5 (Version None)
Quarter: 2004Q2

REPORT INFORMATION
  Report Type: 
  Country: None (occurrence: None)
  Receive Date: 20040608
  Receipt Date: 20040603
  Transmission Date: 20050107
  Serious: Yes (Other)
  Sender: FDA-Public Use
  Company Number: THQ2004A00496

PATIENT
  Age: 64 Year
  Sex: Male

DRUGS (2)
  1. LANSOPRAZOLE [Suspect]
     Dosage: 30 MG (30 MG, 1 IN 1 D) PER ORAL
     Route: 048
     Dates: start: 20010101, end: 20040101
  2. DETRUSITOL (TOLTERODINE L-TARTRATE) [Concomitant]

REACTIONS (1)
  - GASTRIC CANCER [None]
